FAERS Safety Report 10694972 (Version 1)
Quarter: 2015Q1

REPORT INFORMATION
  Report Type: Spontaneous
  Country: TR (occurrence: TR)
  Receive Date: 20150107
  Receipt Date: 20150107
  Transmission Date: 20150721
  Serious: Yes (Other)
  Sender: FDA-Public Use
  Company Number: PHHY2014TR169945

PATIENT
  Age: 17 Year
  Sex: Male

DRUGS (3)
  1. CICLOSPORIN [Suspect]
     Active Substance: CYCLOSPORINE
     Dosage: UNK
     Route: 041
  2. CREMOPHOR EL [Suspect]
     Active Substance: POLYOXYL 35 CASTOR OIL
     Indication: PRODUCT USED FOR UNKNOWN INDICATION
     Route: 042
  3. CICLOSPORIN [Suspect]
     Active Substance: CYCLOSPORINE
     Indication: BONE MARROW TRANSPLANT
     Dosage: 3 MG/KG, QD
     Route: 042

REACTIONS (9)
  - Engraftment syndrome [Recovered/Resolved]
  - Anaphylactic reaction [Recovered/Resolved]
  - Rash erythematous [Recovered/Resolved]
  - Pyrexia [Recovered/Resolved]
  - Face oedema [Recovered/Resolved]
  - Rash maculo-papular [Recovered/Resolved]
  - Respiratory distress [Recovered/Resolved]
  - Weight increased [Recovered/Resolved]
  - Chest pain [Recovered/Resolved]
